FAERS Safety Report 5565295-X (Version None)
Quarter: 2007Q4

REPORT INFORMATION
  Report Type: 
  Country: None (occurrence: None)
  Receive Date: 20071218
  Receipt Date: 20020304
  Transmission Date: 20080405
  Serious: Yes (Death, Hospitalization, Other)
  Sender: FDA-Public Use
  Company Number: US-ROCHE-308413

PATIENT
  Age: 68 Year
  Sex: Female
  Weight: 63.5 kg

DRUGS (10)
  1. XELODA [Suspect]
     Indication: OVARIAN CANCER
     Route: 048
     Dates: start: 20020128, end: 20020207
  2. THALIDOMIDE [Concomitant]
     Route: 048
     Dates: start: 20011101
  3. OXYCONTIN [Concomitant]
     Route: 048
  4. OXYCONTIN [Concomitant]
     Route: 048
  5. VIOXX [Concomitant]
     Route: 048
  6. BUMEX [Concomitant]
     Route: 048
  7. LOVENOX [Concomitant]
  8. PROCRIT [Concomitant]
  9. LUPRON [Concomitant]
  10. LOVENOX [Concomitant]
     Indication: THROMBOSIS PROPHYLAXIS
     Dates: start: 20011001

REACTIONS (16)
  - ABDOMINAL PAIN [None]
  - BLOOD GLUCOSE INCREASED [None]
  - BLOOD PRESSURE DECREASED [None]
  - BLOOD UREA INCREASED [None]
  - CANDIDIASIS [None]
  - CONSTIPATION [None]
  - DIARRHOEA [None]
  - DYSPHAGIA [None]
  - HAEMATEMESIS [None]
  - MOUTH ULCERATION [None]
  - MUCOSAL INFLAMMATION [None]
  - OVARIAN CANCER [None]
  - PHARYNGOLARYNGEAL PAIN [None]
  - RENAL FAILURE [None]
  - RESPIRATORY RATE DECREASED [None]
  - WHITE BLOOD CELL COUNT DECREASED [None]
